FAERS Safety Report 4818885-3 (Version None)
Quarter: 2005Q4

REPORT INFORMATION
  Report Type: 
  Country: None (occurrence: None)
  Receive Date: 20051103
  Receipt Date: 20051024
  Transmission Date: 20060501
  Serious: Yes (Hospitalization)
  Sender: FDA-Public Use
  Company Number: FR-BOEHRINGER INGELHEIM PHARMACEUTICALS, INC.-2005-FF-00754FF

PATIENT
  Age: 75 Year
  Sex: Male

DRUGS (1)
  1. JOSIR [Suspect]
     Route: 048

REACTIONS (3)
  - NEPHROLITHIASIS [None]
  - PROSTATIC DISORDER [None]
  - URINARY RETENTION [None]
